FAERS Safety Report 7573711-7 (Version None)
Quarter: 2011Q2

REPORT INFORMATION
  Report Type: 
  Country: None (occurrence: None)
  Receive Date: 20110627
  Receipt Date: 20110620
  Transmission Date: 20111010
  Serious: Yes (Other)
  Sender: FDA-Public Use
  Company Number: CA-ROCHE-779735

PATIENT
  Sex: Male
  Weight: 83.9 kg

DRUGS (7)
  1. DOMPERIDONE [Concomitant]
  2. SYNTHROID [Concomitant]
  3. BEVACIZUMAB [Suspect]
     Dosage: FORM: INFUSION
     Route: 042
     Dates: start: 20110224, end: 20110505
  4. LYRICA [Concomitant]
  5. FLOMAX [Concomitant]
  6. ADALAT [Concomitant]
  7. PANTOPRAZOLE SODIUM [Concomitant]

REACTIONS (17)
  - ABDOMINAL PAIN [None]
  - HAEMOGLOBIN DECREASED [None]
  - RED BLOOD CELL COUNT DECREASED [None]
  - ILL-DEFINED DISORDER [None]
  - LIVER FUNCTION TEST ABNORMAL [None]
  - PROTEIN URINE PRESENT [None]
  - RENAL FUNCTION TEST ABNORMAL [None]
  - FALL [None]
  - LYMPHOCYTE COUNT DECREASED [None]
  - WHITE BLOOD CELL COUNT DECREASED [None]
  - HAEMATOCRIT DECREASED [None]
  - VOMITING [None]
  - MEAN PLATELET VOLUME DECREASED [None]
  - VERTIGO [None]
  - NEUTROPHIL COUNT DECREASED [None]
  - DIZZINESS [None]
  - MONOCYTE COUNT INCREASED [None]
